FAERS Safety Report 8510731-X (Version None)
Quarter: 2012Q3

REPORT INFORMATION
  Report Type: 
  Country: None (occurrence: None)
  Receive Date: 20120716
  Receipt Date: 20120712
  Transmission Date: 20120928
  Serious: No
  Sender: FDA-Public Use
  Company Number: US-PFIZER INC-2012169620

PATIENT
  Sex: Female
  Weight: 58.503 kg

DRUGS (5)
  1. LYRICA [Interacting]
     Dosage: 150 MG, DAILY
     Route: 048
  2. LYRICA [Suspect]
     Indication: PAIN IN EXTREMITY
     Dosage: 150 MG, DAILY
     Route: 048
     Dates: start: 20110101
  3. EFFEXOR [Interacting]
     Indication: DEPRESSION
     Dosage: 150 MG, DAILY
     Dates: start: 20100101
  4. TRAMADOL HCL [Interacting]
     Indication: INTERVERTEBRAL DISC PROTRUSION
     Dosage: 50 MG, 4X/DAY
  5. LYRICA [Interacting]
     Dosage: 300 MG, DAILY
     Route: 048

REACTIONS (9)
  - SOMNOLENCE [None]
  - FIBROMYALGIA [None]
  - DRUG INTERACTION [None]
  - MALAISE [None]
  - DISTURBANCE IN ATTENTION [None]
  - MENOPAUSE [None]
  - FATIGUE [None]
  - NAUSEA [None]
  - OEDEMA PERIPHERAL [None]
